FAERS Safety Report 7640876-8 (Version None)
Quarter: 2011Q3

REPORT INFORMATION
  Report Type: 
  Country: None (occurrence: None)
  Receive Date: 20110721
  Receipt Date: 20110705
  Transmission Date: 20111222
  Serious: Yes (Other)
  Sender: FDA-Public Use
  Company Number: 2011SP031146

PATIENT
  Sex: Male

DRUGS (1)
  1. NOXAFIL [Suspect]
     Indication: PROPHYLAXIS
     Dosage: 5 ML;TID;PO
     Route: 048

REACTIONS (1)
  - BLOOD CREATININE INCREASED [None]
